FAERS Safety Report 15760889 (Version 2)
Quarter: 2019Q1

REPORT INFORMATION
  Report Type: Spontaneous
  Country: US (occurrence: US)
  Receive Date: 20181226
  Receipt Date: 20190205
  Transmission Date: 20190417
  Serious: No
  Sender: FDA-Public Use
  Company Number: US-PFIZER INC-2018527303

PATIENT
  Age: 10 Year
  Sex: Male
  Weight: 24.95 kg

DRUGS (3)
  1. GENOTROPIN [Suspect]
     Active Substance: SOMATROPIN
     Indication: BLOOD GROWTH HORMONE
     Dosage: 0.9 MG, DAILY
  2. GENOTROPIN [Suspect]
     Active Substance: SOMATROPIN
     Dosage: 1.1 MG, DAILY
  3. GENOTROPIN [Suspect]
     Active Substance: SOMATROPIN
     Dosage: 1.1 MG, 1X/DAY
     Dates: start: 2017

REACTIONS (5)
  - Skin odour abnormal [Unknown]
  - Wrong technique in device usage process [Unknown]
  - Product dose omission [Not Recovered/Not Resolved]
  - Device breakage [Unknown]
  - Intentional underdose [Unknown]
